FAERS Safety Report 9720538 (Version 1)
Quarter: 2013Q4

REPORT INFORMATION
  Report Type: Spontaneous
  Country: FR (occurrence: FR)
  Receive Date: 20131129
  Receipt Date: 20131129
  Transmission Date: 20140711
  Serious: Yes (Other)
  Sender: FDA-Public Use
  Company Number: FR-JNJFOC-20131118003

PATIENT
  Age: 83 Year
  Sex: Female

DRUGS (16)
  1. IXPRIM [Suspect]
     Indication: PRODUCT USED FOR UNKNOWN INDICATION
     Route: 048
     Dates: start: 2013, end: 20131023
  2. SEROPLEX [Suspect]
     Indication: DEPRESSION
     Route: 048
     Dates: start: 201308, end: 20131030
  3. KEPPRA [Concomitant]
     Indication: STATUS EPILEPTICUS
     Route: 048
     Dates: start: 20131104, end: 20131105
  4. KEPPRA [Concomitant]
     Indication: STATUS EPILEPTICUS
     Route: 048
     Dates: start: 20131101, end: 20131103
  5. KEPPRA [Concomitant]
     Indication: STATUS EPILEPTICUS
     Route: 048
     Dates: start: 20130813, end: 20130821
  6. KEPPRA [Concomitant]
     Indication: STATUS EPILEPTICUS
     Route: 048
     Dates: start: 20130822, end: 20131001
  7. KEPPRA [Concomitant]
     Indication: STATUS EPILEPTICUS
     Route: 048
     Dates: start: 20131101, end: 20131101
  8. KEPPRA [Concomitant]
     Indication: STATUS EPILEPTICUS
     Route: 048
     Dates: start: 20131025, end: 20131031
  9. KEPPRA [Concomitant]
     Indication: STATUS EPILEPTICUS
     Route: 048
     Dates: start: 20131002, end: 20131024
  10. OMEPRAZOLE [Concomitant]
     Indication: PRODUCT USED FOR UNKNOWN INDICATION
     Route: 048
  11. ACTONEL [Concomitant]
     Indication: PRODUCT USED FOR UNKNOWN INDICATION
     Route: 048
  12. METHOTREXATE [Concomitant]
     Indication: PRODUCT USED FOR UNKNOWN INDICATION
     Route: 048
  13. ACIDE FOLIQUE [Concomitant]
     Indication: PRODUCT USED FOR UNKNOWN INDICATION
     Route: 048
  14. TAHOR [Concomitant]
     Indication: PRODUCT USED FOR UNKNOWN INDICATION
     Route: 048
  15. AMLOR [Concomitant]
     Indication: PRODUCT USED FOR UNKNOWN INDICATION
     Route: 048
  16. KARDEGIC [Concomitant]
     Indication: PRODUCT USED FOR UNKNOWN INDICATION
     Route: 048
     Dates: end: 20130812

REACTIONS (2)
  - Myoclonus [Unknown]
  - Confusional state [Unknown]
